FAERS Safety Report 17912475 (Version 2)
Quarter: 2020Q2

REPORT INFORMATION
  Report Type: Spontaneous
  Country: US (occurrence: US)
  Receive Date: 20200618
  Receipt Date: 20200622
  Transmission Date: 20200714
  Serious: No
  Sender: FDA-Public Use
  Company Number: US-PFIZER INC-2020235160

PATIENT
  Age: 66 Year
  Sex: Female
  Weight: 71.5 kg

DRUGS (6)
  1. FLEXERIL [CEFIXIME] [Concomitant]
     Active Substance: CEFIXIME
     Indication: MUSCLE RELAXANT THERAPY
     Dosage: 10 MG, AS NEEDED
     Route: 048
  2. IBRANCE [Suspect]
     Active Substance: PALBOCICLIB
     Indication: BREAST CANCER METASTATIC
     Dosage: 125 MG, CYCLIC (1 TABLET DAILY FOR 3 WEEKS THEN OFF 1 WEEK, TAKES FOR 21 DAYS)
     Dates: start: 202004
  3. METOPROLOL. [Concomitant]
     Active Substance: METOPROLOL
     Indication: CARDIAC DISORDER
     Dosage: 25 MG, 2X/DAY (25 MG 1 TABLET BY MOUTH TWICE A DAY)
     Route: 048
     Dates: start: 2007
  4. ELIQUIS [Concomitant]
     Active Substance: APIXABAN
     Indication: COAGULOPATHY
     Dosage: 2.5 MG, DAILY (2.5 MG 1 TABLET BY MOUTH DAILY)
     Route: 048
  5. LORAZEPAM. [Concomitant]
     Active Substance: LORAZEPAM
     Indication: ANXIETY
     Dosage: 0.5 MG, AS NEEDED (0.5 MG 1 TABLET BY MOUTH AS NEEDED)
     Route: 048
  6. AROMASIN [Concomitant]
     Active Substance: EXEMESTANE
     Indication: AROMATASE INHIBITION THERAPY
     Dosage: 25 MG, DAILY (25 MG 1 TABLET BY MOUTH DAILY)
     Route: 048

REACTIONS (9)
  - Skin exfoliation [Unknown]
  - Arthralgia [Unknown]
  - Vision blurred [Unknown]
  - Disease recurrence [Unknown]
  - Nausea [Unknown]
  - Vertigo [Unknown]
  - Sensitisation [Unknown]
  - Abdominal discomfort [Unknown]
  - Nail disorder [Unknown]

NARRATIVE: CASE EVENT DATE: 2020
